FAERS Safety Report 25638169 (Version 1)
Quarter: 2025Q3

REPORT INFORMATION
  Report Type: Spontaneous
  Country: US (occurrence: US)
  Receive Date: 20250804
  Receipt Date: 20250804
  Transmission Date: 20251021
  Serious: Yes (Other)
  Sender: MYLAN
  Company Number: US-MYLANLABS-2025M1064478

PATIENT
  Age: 77 Year
  Sex: Male

DRUGS (1)
  1. AMIODARONE [Suspect]
     Active Substance: AMIODARONE
     Indication: Atrial fibrillation

REACTIONS (4)
  - Graves^ disease [Recovering/Resolving]
  - Hyperthyroidism [Recovering/Resolving]
  - Endocrine ophthalmopathy [Recovering/Resolving]
  - Thyroid dermatopathy [Recovering/Resolving]
